FAERS Safety Report 18418873 (Version 1)
Quarter: 2020Q4

REPORT INFORMATION
  Report Type: Spontaneous
  Country: US (occurrence: US)
  Receive Date: 20201022
  Receipt Date: 20201022
  Transmission Date: 20210114
  Serious: Yes (Other)
  Sender: FDA-Public Use
  Company Number: None

PATIENT
  Age: 31 Year
  Sex: Male

DRUGS (1)
  1. SULFASALAZINE DELAYED-RELEASE [Suspect]
     Active Substance: SULFASALAZINE
     Route: 048
     Dates: start: 20200812, end: 20201013

REACTIONS (4)
  - Frequent bowel movements [None]
  - Nausea [None]
  - Abdominal discomfort [None]
  - Condition aggravated [None]

NARRATIVE: CASE EVENT DATE: 20200812
